FAERS Safety Report 23423647 (Version 3)
Quarter: 2024Q3

REPORT INFORMATION
  Report Type: Spontaneous
  Country: JP (occurrence: JP)
  Receive Date: 20240119
  Receipt Date: 20240711
  Transmission Date: 20241016
  Serious: Yes (Other)
  Sender: LUNDBECK
  Company Number: JP-SA-2024SA015053

PATIENT

DRUGS (18)
  1. SABRIL [Suspect]
     Active Substance: VIGABATRIN
     Indication: Product used for unknown indication
     Dosage: 750 MG, BID
     Route: 048
     Dates: start: 20211202
  2. SABRIL [Suspect]
     Active Substance: VIGABATRIN
     Dosage: UNK
     Route: 048
     Dates: start: 20211115, end: 2021
  3. EVEROLIMUS [Concomitant]
     Active Substance: EVEROLIMUS
     Dosage: DAILY DOSE: 3 MG
     Route: 048
     Dates: start: 20220307
  4. EVEROLIMUS [Concomitant]
     Active Substance: EVEROLIMUS
     Indication: Product used for unknown indication
  5. DIAZEPAM [Concomitant]
     Active Substance: DIAZEPAM
     Dosage: 4-6 MG, PRN
  6. DIAZEPAM [Concomitant]
     Active Substance: DIAZEPAM
     Indication: Product used for unknown indication
  7. VALPROATE SODIUM [Concomitant]
     Active Substance: VALPROATE SODIUM
     Indication: Product used for unknown indication
     Dosage: DAILY DOSE: 240 MG
     Route: 048
     Dates: start: 20220926, end: 20221225
  8. VALPROATE SODIUM [Concomitant]
     Active Substance: VALPROATE SODIUM
     Dosage: DAILY DOSE: 250 MG
     Route: 048
     Dates: start: 20221226, end: 20230702
  9. VALPROATE SODIUM [Concomitant]
     Active Substance: VALPROATE SODIUM
     Dosage: DAILY DOSE: 400 MG
     Route: 048
     Dates: start: 20230703
  10. CHLORAL HYDRATE [Concomitant]
     Active Substance: CHLORAL HYDRATE
     Indication: Product used for unknown indication
     Dosage: DAILY DOSE: 500 MG, PRN
     Dates: start: 20230827
  11. MIDAZOLAM HYDROCHLORIDE [Concomitant]
     Active Substance: MIDAZOLAM HYDROCHLORIDE
     Indication: Product used for unknown indication
     Dosage: DAILY DOSE: 5 MG, PRN
     Route: 048
     Dates: start: 20230818
  12. LAMOTRIGINE [Concomitant]
     Active Substance: LAMOTRIGINE
     Indication: Product used for unknown indication
     Dosage: DAILY DOSE: 2 MG
     Route: 048
     Dates: start: 20230712, end: 20230723
  13. LAMOTRIGINE [Concomitant]
     Active Substance: LAMOTRIGINE
     Dosage: DAILY DOSE: 4 MG
     Route: 048
     Dates: start: 20230724, end: 20230817
  14. LAMOTRIGINE [Concomitant]
     Active Substance: LAMOTRIGINE
     Dosage: DAILY DOSE: 6 MG
     Route: 048
     Dates: start: 20230818, end: 20230827
  15. LAMOTRIGINE [Concomitant]
     Active Substance: LAMOTRIGINE
     Dosage: DAILY DOSE: 10 MG
     Route: 048
     Dates: start: 20230828, end: 20230910
  16. LAMOTRIGINE [Concomitant]
     Active Substance: LAMOTRIGINE
     Dosage: DAILY DOSE: 14 MG
     Route: 048
     Dates: start: 20230911, end: 20231001
  17. LAMOTRIGINE [Concomitant]
     Active Substance: LAMOTRIGINE
     Dosage: DAILY DOSE: 18 MG
     Route: 048
     Dates: start: 20231002, end: 20231119
  18. LAMOTRIGINE [Concomitant]
     Active Substance: LAMOTRIGINE
     Dosage: DAILY DOSE: 22 MG
     Route: 048
     Dates: start: 20231120

REACTIONS (3)
  - Retinal degeneration [Not Recovered/Not Resolved]
  - Hypermetropia [Not Recovered/Not Resolved]
  - Refractive amblyopia [Not Recovered/Not Resolved]

NARRATIVE: CASE EVENT DATE: 20220913
